FAERS Safety Report 6301910-0 (Version None)
Quarter: 2009Q3

REPORT INFORMATION
  Report Type: 
  Country: None (occurrence: None)
  Receive Date: 20090807
  Receipt Date: 20090803
  Transmission Date: 20100115
  Serious: Yes (Other)
  Sender: FDA-Public Use
  Company Number: FR-ROCHE-647723

PATIENT
  Age: 65 Year
  Sex: Male

DRUGS (1)
  1. ROCEPHIN [Suspect]
     Indication: URINARY TRACT INFECTION
     Dosage: 1 INJECTION DAILY SO 30 INJECTIONS
     Route: 065
     Dates: start: 20090529, end: 20090627

REACTIONS (3)
  - DIABETES MELLITUS [None]
  - PANCREATITIS [None]
  - RED BLOOD CELL COUNT INCREASED [None]
